FAERS Safety Report 11781520 (Version 2)
Quarter: 2015Q4

REPORT INFORMATION
  Report Type: Report from Study
  Country: DE (occurrence: DE)
  Receive Date: 20151126
  Receipt Date: 20151217
  Transmission Date: 20160305
  Serious: Yes (Hospitalization)
  Sender: FDA-Public Use
  Company Number: DE-ABBVIE-09P-062-0558971-00

PATIENT
  Age: 62 Year
  Sex: Male
  Weight: 93 kg

DRUGS (4)
  1. HUMIRA [Suspect]
     Active Substance: ADALIMUMAB
     Indication: PSORIASIS
     Route: 058
  2. MTX [Suspect]
     Active Substance: METHOTREXATE SODIUM
     Indication: PSORIATIC ARTHROPATHY
     Route: 058
     Dates: start: 200710
  3. MTX [Suspect]
     Active Substance: METHOTREXATE SODIUM
     Indication: PSORIASIS
  4. HUMIRA [Suspect]
     Active Substance: ADALIMUMAB
     Indication: PSORIATIC ARTHROPATHY
     Route: 058
     Dates: start: 20080912, end: 20081231

REACTIONS (7)
  - Bladder stenosis [Recovered/Resolved with Sequelae]
  - Bladder stenosis [Recovered/Resolved with Sequelae]
  - Bladder stenosis [Recovered/Resolved with Sequelae]
  - Adhesion [Recovered/Resolved]
  - Benign prostatic hyperplasia [Unknown]
  - Bladder neck obstruction [Recovered/Resolved]
  - Urine flow decreased [Recovered/Resolved]

NARRATIVE: CASE EVENT DATE: 20081209
